FAERS Safety Report 5242314-1 (Version None)
Quarter: 2007Q1

REPORT INFORMATION
  Report Type: 
  Country: None (occurrence: None)
  Receive Date: 20070214
  Receipt Date: 20070201
  Transmission Date: 20070707
  Serious: Yes (Death)
  Sender: FDA-Public Use
  Company Number: 2007-00660

PATIENT
  Age: 38 Year

DRUGS (3)
  1. LORAZEPAM [Suspect]
  2. HALOPERIDOL [Suspect]
  3. COCAINE (COCAINE) [Suspect]

REACTIONS (1)
  - DEATH [None]
